FAERS Safety Report 7273330-6 (Version None)
Quarter: 2011Q1

REPORT INFORMATION
  Report Type: 
  Country: None (occurrence: None)
  Receive Date: 20110203
  Receipt Date: 20101016
  Transmission Date: 20110831
  Serious: No
  Sender: FDA-Public Use
  Company Number: US-ABBOTT-10P-163-0679336-00

PATIENT
  Sex: Female

DRUGS (1)
  1. SYNTHROID [Suspect]
     Indication: HYPOTHYROIDISM
     Dates: start: 20100801, end: 20101001

REACTIONS (5)
  - RASH [None]
  - URTICARIA [None]
  - DERMATITIS HERPETIFORMIS [None]
  - RASH GENERALISED [None]
  - PSORIASIS [None]
